FAERS Safety Report 12198002 (Version 1)
Quarter: 2016Q1

REPORT INFORMATION
  Report Type: Spontaneous
  Country: US (occurrence: US)
  Receive Date: 20160322
  Receipt Date: 20160322
  Transmission Date: 20160526
  Serious: No
  Sender: FDA-Public Use
  Company Number: US-JNJFOC-20160211300

PATIENT
  Age: 47 Year
  Sex: Female

DRUGS (1)
  1. STELARA [Suspect]
     Active Substance: USTEKINUMAB
     Indication: HIDRADENITIS
     Dosage: 1ST DOSE
     Route: 058
     Dates: start: 20160114

REACTIONS (5)
  - Product use issue [Unknown]
  - Off label use [Unknown]
  - Hypertension [Unknown]
  - Neck pain [Recovered/Resolved]
  - Fatigue [Recovered/Resolved]

NARRATIVE: CASE EVENT DATE: 2016
